FAERS Safety Report 6430738-6 (Version None)
Quarter: 2009Q4

REPORT INFORMATION
  Report Type: 
  Country: None (occurrence: None)
  Receive Date: 20091105
  Receipt Date: 20091105
  Transmission Date: 20100525
  Serious: Yes (Hospitalization)
  Sender: FDA-Public Use
  Company Number: None

PATIENT
  Sex: Male
  Weight: 65.3 kg

DRUGS (2)
  1. CISPLATIN [Suspect]
     Dosage: 147 MG
  2. ETOPOSIDE [Suspect]
     Dosage: 552 MG

REACTIONS (1)
  - PYREXIA [None]
